FAERS Safety Report 7186792-X (Version None)
Quarter: 2010Q4

REPORT INFORMATION
  Report Type: 
  Country: None (occurrence: None)
  Receive Date: 20101222
  Receipt Date: 20101216
  Transmission Date: 20110411
  Serious: Yes (Hospitalization)
  Sender: FDA-Public Use
  Company Number: A0885112A

PATIENT
  Sex: Male
  Weight: 61 kg

DRUGS (3)
  1. LAPATINIB [Suspect]
     Route: 048
     Dates: start: 20100830
  2. CISPLATIN [Suspect]
     Dosage: 100MGM2 CYCLIC
     Route: 042
     Dates: start: 20100907
  3. RADIOTHERAPY [Suspect]
     Route: 061

REACTIONS (6)
  - BLOOD CREATININE INCREASED [None]
  - DIARRHOEA [None]
  - EATING DISORDER [None]
  - MUCOSAL INFLAMMATION [None]
  - NAUSEA [None]
  - VOMITING [None]
